FAERS Safety Report 13178234 (Version 1)
Quarter: 2017Q1

REPORT INFORMATION
  Report Type: Spontaneous
  Country: US (occurrence: US)
  Receive Date: 20170131
  Receipt Date: 20170131
  Transmission Date: 20170428
  Serious: Yes (Disabling)
  Sender: FDA-Public Use
  Company Number: None

PATIENT
  Age: 64 Year
  Sex: Male
  Weight: 90 kg

DRUGS (14)
  1. POTASSIUM CL ER [Concomitant]
     Active Substance: POTASSIUM CHLORIDE
  2. VITAMIN D3 [Concomitant]
     Active Substance: CHOLECALCIFEROL
  3. SUPRAX [Concomitant]
     Active Substance: CEFIXIME
  4. DULERA [Concomitant]
     Active Substance: FORMOTEROL FUMARATE DIHYDRATE\MOMETASONE FUROATE
  5. TUMERIC [Concomitant]
     Active Substance: TURMERIC
  6. BYSTOLIC [Concomitant]
     Active Substance: NEBIVOLOL HYDROCHLORIDE
  7. XOPENEX [Concomitant]
     Active Substance: LEVALBUTEROL HYDROCHLORIDE
  8. COREPLEX MULTIVITAMIN [Concomitant]
  9. HYDROCHLOROTHIAZIDE. [Concomitant]
     Active Substance: HYDROCHLOROTHIAZIDE
  10. IRBESARTAN/HCTZ-AVALIDE [Concomitant]
  11. SAW PALMETTO [Concomitant]
     Active Substance: SAW PALMETTO
  12. SULFAMETH / TMP 800/160MG TB NEW-E [Suspect]
     Active Substance: SULFAMETHOXAZOLE\TRIMETHOPRIM
     Indication: BACTERIAL INFECTION
     Dosage: ?          QUANTITY:20 CAPSULE(S);?
     Route: 048
  13. ASTEPRO [Concomitant]
     Active Substance: AZELASTINE HYDROCHLORIDE
  14. ALLEGRA [Concomitant]
     Active Substance: FEXOFENADINE HYDROCHLORIDE

REACTIONS (2)
  - Back pain [None]
  - Pain in extremity [None]

NARRATIVE: CASE EVENT DATE: 20170129
